FAERS Safety Report 25215957 (Version 1)
Quarter: 2025Q2

REPORT INFORMATION
  Report Type: Spontaneous
  Country: US (occurrence: US)
  Receive Date: 20250418
  Receipt Date: 20250418
  Transmission Date: 20250717
  Serious: No
  Sender: PFIZER
  Company Number: US-PFIZER INC-202500078533

PATIENT
  Age: 80 Year
  Sex: Male
  Weight: 102.96 kg

DRUGS (1)
  1. VYNDAMAX [Suspect]
     Active Substance: TAFAMIDIS
     Indication: Amyloidosis
     Dosage: TAKE 1 CAPSULE BY ORAL ROUTE EVERY DAY
     Route: 048
     Dates: start: 20250409

REACTIONS (1)
  - Confusional state [Unknown]
